FAERS Safety Report 16590548 (Version 1)
Quarter: 2019Q3

REPORT INFORMATION
  Report Type: Spontaneous
  Country: US (occurrence: US)
  Receive Date: 20190604
  Receipt Date: 20190604
  Transmission Date: 20191004
  Serious: No
  Sender: FDA-Public Use
  Company Number: None

PATIENT
  Sex: Male

DRUGS (2)
  1. PROPRANOLOL [Suspect]
     Active Substance: PROPRANOLOL HYDROCHLORIDE
  2. PRAVACHOL [Suspect]
     Active Substance: PRAVASTATIN SODIUM

REACTIONS (11)
  - Wrong product administered [None]
  - Weight increased [None]
  - Anxiety [None]
  - Lethargy [None]
  - Chronic obstructive pulmonary disease [None]
  - Paraesthesia [None]
  - Product dispensing error [None]
  - Condition aggravated [None]
  - Unevaluable event [None]
  - Tremor [None]
  - Bipolar disorder [None]

NARRATIVE: CASE EVENT DATE: 2018
